FAERS Safety Report 21873603 (Version 2)
Quarter: 2023Q1

REPORT INFORMATION
  Report Type: Spontaneous
  Country: JP (occurrence: JP)
  Receive Date: 20230117
  Receipt Date: 20230203
  Transmission Date: 20230418
  Serious: Yes (Hospitalization)
  Sender: FDA-Public Use
  Company Number: JP-PFIZER INC-PV202200124518

PATIENT
  Age: 78 Year
  Sex: Female
  Weight: 42.2 kg

DRUGS (7)
  1. PAXLOVID [Suspect]
     Active Substance: NIRMATRELVIR\RITONAVIR
     Indication: COVID-19 treatment
     Dosage: [PF-07321332 300 MG]/[RITONAVIR 100 MG]; 2X/DAY
     Route: 048
     Dates: start: 20221126, end: 20221128
  2. NEXIUM [Concomitant]
     Active Substance: ESOMEPRAZOLE MAGNESIUM
     Dosage: 20 MG, 1X/DAY
     Route: 048
  3. CARBIDOPA\LEVODOPA [Concomitant]
     Active Substance: CARBIDOPA\LEVODOPA
     Dosage: 1 TABLET, 3X/DAY
     Route: 048
  4. TALTIRELIN [Concomitant]
     Active Substance: TALTIRELIN
     Dosage: 5 MG, 2X/DAY
     Route: 048
  5. VALPROATE SODIUM [Concomitant]
     Active Substance: VALPROATE SODIUM
     Dosage: 400 MG, 2X/DAY
     Route: 048
  6. HICEE [ASCORBIC ACID] [Concomitant]
     Dosage: 2.67 G, 3X/DAY
     Route: 048
  7. HERBALS [Concomitant]
     Active Substance: HERBALS
     Dosage: 2.5 G, 3X/DAY
     Route: 048

REACTIONS (12)
  - Pneumonia bacterial [Unknown]
  - Oxygen saturation decreased [Recovered/Resolved]
  - Pneumonia aspiration [Recovered/Resolved]
  - Fibrin D dimer increased [Unknown]
  - Fibrin degradation products increased [Unknown]
  - C-reactive protein increased [Recovered/Resolved]
  - Interleukin level increased [Unknown]
  - Troponin I increased [Unknown]
  - Renal disorder [Unknown]
  - Primary cerebellar degeneration [Unknown]
  - Dysphagia [Unknown]
  - Therapeutic product effect incomplete [Unknown]

NARRATIVE: CASE EVENT DATE: 20221128
